FAERS Safety Report 17185459 (Version 1)
Quarter: 2019Q4

REPORT INFORMATION
  Report Type: Spontaneous
  Country: US (occurrence: US)
  Receive Date: 20191220
  Receipt Date: 20191220
  Transmission Date: 20200122
  Serious: No
  Sender: FDA-Public Use
  Company Number: US-MALLINCKRODT-T201902563

PATIENT
  Sex: Male

DRUGS (3)
  1. OXYCONTIN [Concomitant]
     Active Substance: OXYCODONE HYDROCHLORIDE
     Indication: PAIN
     Dosage: 10 MG, UNK
     Route: 065
  2. FENTANYL TRANSDERMAL SYSTEM [Suspect]
     Active Substance: FENTANYL
     Indication: CANCER PAIN
     Dosage: 25 MCG/HOUR, 1 PATCH EVERY 3 DAYS
     Route: 062
     Dates: start: 20190206, end: 2019
  3. FENTANYL TRANSDERMAL SYSTEM [Suspect]
     Active Substance: FENTANYL
     Indication: CANCER PAIN
     Dosage: 50 MCG/HOUR, 1 PATCH EVERY 3 DAYS
     Route: 062
     Dates: start: 20190304

REACTIONS (6)
  - Hypersomnia [Unknown]
  - Monoparesis [Unknown]
  - Insomnia [Unknown]
  - Drug ineffective [Unknown]
  - Neuralgia [Unknown]
  - Chest pain [Unknown]

NARRATIVE: CASE EVENT DATE: 2019
